FAERS Safety Report 6592895-0 (Version None)
Quarter: 2010Q1

REPORT INFORMATION
  Report Type: 
  Country: None (occurrence: None)
  Receive Date: 20100212
  Receipt Date: 20100205
  Transmission Date: 20100710
  Serious: Yes (Hospitalization)
  Sender: FDA-Public Use
  Company Number: 2009SP027182

PATIENT
  Age: 57 Year
  Sex: Male
  Weight: 63.3 kg

DRUGS (6)
  1. PEG-INTRON [Suspect]
     Indication: HEPATITIS C
     Dosage: 100 MCG;QW;SC
     Route: 058
     Dates: start: 20070222, end: 20071231
  2. REBETOL [Suspect]
     Indication: HEPATITIS C
     Dosage: 800 MG;QD;PO, 600 MG;QD;PO, 400 MG;QD;PO
     Route: 048
     Dates: start: 20070222, end: 20070325
  3. REBETOL [Suspect]
     Indication: HEPATITIS C
     Dosage: 800 MG;QD;PO, 600 MG;QD;PO, 400 MG;QD;PO
     Route: 048
     Dates: start: 20070326, end: 20070520
  4. REBETOL [Suspect]
     Indication: HEPATITIS C
     Dosage: 800 MG;QD;PO, 600 MG;QD;PO, 400 MG;QD;PO
     Route: 048
     Dates: start: 20070521, end: 20071231
  5. TAKEPRON OD [Concomitant]
  6. MYONAL [Concomitant]

REACTIONS (5)
  - DEPRESSIVE SYMPTOM [None]
  - GLOMERULONEPHRITIS RAPIDLY PROGRESSIVE [None]
  - OEDEMA [None]
  - RENAL IMPAIRMENT [None]
  - TUBULOINTERSTITIAL NEPHRITIS [None]
